FAERS Safety Report 6553749-9 (Version None)
Quarter: 2010Q1

REPORT INFORMATION
  Report Type: 
  Country: None (occurrence: None)
  Receive Date: 20100125
  Receipt Date: 20100125
  Transmission Date: 20100710
  Serious: Yes (Disabling, Other)
  Sender: FDA-Public Use
  Company Number: None

PATIENT
  Sex: Female
  Weight: 66.2252 kg

DRUGS (3)
  1. CLOBETASOL PROPIONATE [Suspect]
     Indication: ARTHRALGIA
     Dosage: TARO GM 2X DAILY
     Dates: start: 20091028
  2. CLOBETASOL PROPIONATE [Suspect]
     Indication: PRURITUS
     Dosage: TARO GM 2X DAILY
     Dates: start: 20091028
  3. CLOBETASOL PROPIONATE [Suspect]
     Indication: SWELLING
     Dosage: TARO GM 2X DAILY
     Dates: start: 20091028

REACTIONS (1)
  - SKIN DISCOLOURATION [None]
